FAERS Safety Report 8197641-5 (Version None)
Quarter: 2012Q1

REPORT INFORMATION
  Report Type: 
  Country: None (occurrence: None)
  Receive Date: 20120309
  Receipt Date: 20120302
  Transmission Date: 20120608
  Serious: Yes (Hospitalization, Other)
  Sender: FDA-Public Use
  Company Number: US-ABBOTT-12P-163-0893035-00

PATIENT
  Age: 54 Year
  Sex: Female

DRUGS (7)
  1. PROTONIX [Concomitant]
     Indication: PRODUCT USED FOR UNKNOWN INDICATION
     Dosage: 40MG DAILY
  2. PERIACTIN [Concomitant]
     Indication: PRODUCT USED FOR UNKNOWN INDICATION
  3. HUMIRA [Suspect]
     Indication: CROHN'S DISEASE
     Dosage: LOADING DOSE OF 4 PENS ON 1 DAY
     Dates: start: 20111123, end: 20111123
  4. ASACOL [Concomitant]
     Indication: PRODUCT USED FOR UNKNOWN INDICATION
  5. MEGACE [Concomitant]
     Indication: PRODUCT USED FOR UNKNOWN INDICATION
  6. EXFORDE [Concomitant]
     Indication: PRODUCT USED FOR UNKNOWN INDICATION
  7. PREDNISONE [Concomitant]
     Indication: PRODUCT USED FOR UNKNOWN INDICATION

REACTIONS (14)
  - URINARY TRACT INFECTION [None]
  - UNRESPONSIVE TO STIMULI [None]
  - GASTRIC FISTULA [None]
  - THROMBOSIS [None]
  - RED BLOOD CELL COUNT DECREASED [None]
  - FUNGAL INFECTION [None]
  - GASTROINTESTINAL HAEMORRHAGE [None]
  - MALAISE [None]
  - ABDOMINAL ABSCESS [None]
  - MEMORY IMPAIRMENT [None]
  - ABDOMINAL PAIN [None]
  - BLOOD GLUCOSE INCREASED [None]
  - FISTULA DISCHARGE [None]
  - INTERNATIONAL NORMALISED RATIO ABNORMAL [None]
